FAERS Safety Report 10098337 (Version 1)
Quarter: 2014Q2

REPORT INFORMATION
  Report Type: Spontaneous
  Country: US (occurrence: US)
  Receive Date: 20140423
  Receipt Date: 20140423
  Transmission Date: 20141212
  Serious: Yes (Other)
  Sender: FDA-Public Use
  Company Number: US-BAYER-2014-055884

PATIENT
  Age: 25 Year
  Sex: Female

DRUGS (3)
  1. YASMIN [Suspect]
  2. OCELLA [Suspect]
  3. SULFAMETHOXAZOLE/TRIMETHOPRIM [Concomitant]
     Dosage: 800-160 ONCE TABLET TWICE DAILY
     Dates: start: 20080923

REACTIONS (1)
  - Thrombophlebitis superficial [None]
